FAERS Safety Report 5758023-6 (Version None)
Quarter: 2008Q2

REPORT INFORMATION
  Report Type: 
  Country: None (occurrence: None)
  Receive Date: 20080602
  Receipt Date: 20080602
  Transmission Date: 20081010
  Serious: Yes (Hospitalization)
  Sender: FDA-Public Use
  Company Number: None

PATIENT
  Age: 69 Year
  Sex: Female
  Weight: 53.978 kg

DRUGS (2)
  1. FOSAMAX PLUS D [Suspect]
     Indication: OSTEOPOROSIS
     Dosage: ONCE PER WEEK
     Dates: start: 19980105, end: 20080205
  2. FOSAMAX [Suspect]
     Indication: OSTEOPOROSIS
     Dosage: ONCE PER WEEK
     Dates: start: 20080220, end: 20080516

REACTIONS (8)
  - ASTHENIA [None]
  - DEHYDRATION [None]
  - HAEMATEMESIS [None]
  - HAEMOGLOBIN DECREASED [None]
  - HAEMORRHAGE [None]
  - PALPITATIONS [None]
  - PRESYNCOPE [None]
  - ULCER [None]
